FAERS Safety Report 9336820 (Version 2)
Quarter: 2013Q3

REPORT INFORMATION
  Report Type: Report from Study
  Country: US (occurrence: US)
  Receive Date: 20130607
  Receipt Date: 20130701
  Transmission Date: 20140515
  Serious: Yes (Hospitalization, Other)
  Sender: FDA-Public Use
  Company Number: PHEH2013US012322

PATIENT
  Age: 71 Year
  Sex: Male

DRUGS (10)
  1. TOBI [Suspect]
     Indication: BRONCHIECTASIS
     Dosage: 300 MG, BID, 1 MONTH ON , 1 MONTH OFF
     Dates: start: 20130419, end: 20130605
  2. TOBI [Suspect]
     Dosage: UNK UKN, UNK
  3. SYMBICORT [Concomitant]
     Dosage: UNK UKN, UNK
  4. NYSTATIN [Concomitant]
     Dosage: UNK UKN, UNK
  5. SOTALOL HYDROCHLORIDE [Concomitant]
     Dosage: UNK UKN, UNK
  6. COUMADIN ^BOOTS^ [Concomitant]
     Dosage: UNK UKN, UNK
  7. METHYLPHENIDATE HYDROCHLORIDE [Concomitant]
     Dosage: UNK UKN, UNK
  8. CYMBALTA [Concomitant]
     Dosage: UNK UKN, UNK
  9. DIGOXIN [Concomitant]
     Dosage: UNK UKN, UNK
  10. HYDROCODONE BITARTRATE [Concomitant]
     Dosage: UNK UKN, UNK

REACTIONS (3)
  - Loss of consciousness [Recovered/Resolved]
  - Dysphagia [Not Recovered/Not Resolved]
  - Weight decreased [Unknown]
